FAERS Safety Report 23599223 (Version 4)
Quarter: 2024Q2

REPORT INFORMATION
  Report Type: Spontaneous
  Country: FR (occurrence: FR)
  Receive Date: 20240306
  Receipt Date: 20240521
  Transmission Date: 20240716
  Serious: Yes (Other)
  Sender: FDA-Public Use
  Company Number: FR-JNJFOC-20240280719

PATIENT
  Age: 75 Year
  Sex: Male
  Weight: 78 kg

DRUGS (1)
  1. TECVAYLI [Suspect]
     Active Substance: TECLISTAMAB-CQYV
     Indication: Plasma cell myeloma
     Dosage: 7TH LINE TREATMENT
     Route: 065

REACTIONS (3)
  - Hepatic cancer [Unknown]
  - Pancreatic carcinoma [Unknown]
  - Plasma cell myeloma [Unknown]
